FAERS Safety Report 21285993 (Version 1)
Quarter: 2022Q3

REPORT INFORMATION
  Report Type: Spontaneous
  Country: US (occurrence: None)
  Receive Date: 20220901
  Receipt Date: 20220901
  Transmission Date: 20221026
  Serious: Yes (Other)
  Sender: FDA-Public Use
  Company Number: None

PATIENT
  Age: 57 Year
  Sex: Female
  Weight: 102.6 kg

DRUGS (17)
  1. JARDIANCE [Suspect]
     Active Substance: EMPAGLIFLOZIN
     Indication: Proteinuria
     Route: 048
     Dates: start: 20220609, end: 20220709
  2. NORCO [Concomitant]
     Active Substance: ACETAMINOPHEN\HYDROCODONE BITARTRATE
  3. ALLOPURINOL [Concomitant]
     Active Substance: ALLOPURINOL
  4. SEROQUEL [Concomitant]
     Active Substance: QUETIAPINE FUMARATE
  5. Traxzodone [Concomitant]
  6. MELATONIN [Concomitant]
     Active Substance: MELATONIN
  7. VITAMIN D [Concomitant]
     Active Substance: VITAMIN D NOS
  8. CLONIDINE [Concomitant]
     Active Substance: CLONIDINE
  9. CLIMARA [Concomitant]
     Active Substance: ESTRADIOL
  10. HERBALS\TURMERIC [Concomitant]
     Active Substance: HERBALS\TURMERIC
  11. IRON [Concomitant]
     Active Substance: IRON
  12. MAGNESIUM [Concomitant]
     Active Substance: MAGNESIUM
  13. VITAMIN C [Concomitant]
     Active Substance: ASCORBIC ACID
  14. CALCIUM [Concomitant]
     Active Substance: CALCIUM
  15. VITAMIN B12 [Concomitant]
     Active Substance: CYANOCOBALAMIN
  16. VITAMIN B COMPLEX [Concomitant]
     Active Substance: CYANOCOBALAMIN\DEXPANTHENOL\NIACINAMIDE\PYRIDOXINE HYDROCHLORIDE\RIBOFLAVIN 5^-PHOSPHATE SODIUM\THIA
  17. VITAMINS [Concomitant]
     Active Substance: VITAMINS

REACTIONS (5)
  - Vascular occlusion [None]
  - Renal vessel disorder [None]
  - Glomerular filtration rate decreased [None]
  - Renal impairment [None]
  - Glomerulonephritis [None]

NARRATIVE: CASE EVENT DATE: 20220709
